FAERS Safety Report 5444600-9 (Version None)
Quarter: 2007Q3

REPORT INFORMATION
  Report Type: 
  Country: None (occurrence: None)
  Receive Date: 20070906
  Receipt Date: 20070904
  Transmission Date: 20080115
  Serious: Yes (Life-Threatening, Hospitalization, Other)
  Sender: FDA-Public Use
  Company Number: US-JNJFOC-20070301267

PATIENT
  Age: 11 Year
  Sex: Female

DRUGS (3)
  1. INFLIXIMAB [Suspect]
     Indication: CROHN'S DISEASE
     Route: 042
  2. SOLU-MEDROL [Concomitant]
     Indication: CROHN'S DISEASE
     Route: 042
  3. ANTIOBIOTIC [Concomitant]
     Indication: CROHN'S DISEASE

REACTIONS (3)
  - CEREBRAL HAEMORRHAGE [None]
  - CEREBRAL INFARCTION [None]
  - INTRACRANIAL VENOUS SINUS THROMBOSIS [None]
